FAERS Safety Report 5491271-1 (Version None)
Quarter: 2007Q4

REPORT INFORMATION
  Report Type: 
  Country: None (occurrence: None)
  Receive Date: 20071017
  Receipt Date: 20071002
  Transmission Date: 20080405
  Serious: Yes (Hospitalization)
  Sender: FDA-Public Use
  Company Number: S07-FRA-05432-01

PATIENT
  Age: 69 Year
  Sex: Female

DRUGS (10)
  1. MEMANTINE HCL [Suspect]
     Dosage: 10 MG BID PO
     Route: 048
     Dates: end: 20070709
  2. OFLOXACIN [Suspect]
     Dates: start: 20070703, end: 20070709
  3. TAZOCILINE [Concomitant]
  4. CEFTRIAXONE [Concomitant]
  5. SKENAN       (MORPHINE SULFATE) [Concomitant]
  6. ACTISEKNAN [Concomitant]
  7. ZOCOR [Concomitant]
  8. ACUPAN [Concomitant]
  9. THERALENE            (ALIMEMAZINE TARTRATE) [Concomitant]
  10. LEVOTHYROXINE SODIUM [Concomitant]

REACTIONS (4)
  - CYTOLYTIC HEPATITIS [None]
  - HEPATITIS CHOLESTATIC [None]
  - PYELONEPHRITIS ACUTE [None]
  - SEPSIS [None]
